FAERS Safety Report 20404627 (Version 1)
Quarter: 2022Q1

REPORT INFORMATION
  Report Type: Spontaneous
  Country: US (occurrence: None)
  Receive Date: 20220128
  Receipt Date: 20220128
  Transmission Date: 20220424
  Serious: Yes (Disabling, Other)
  Sender: FDA-Public Use
  Company Number: None

PATIENT
  Age: 38 Year
  Sex: Female
  Weight: 65.25 kg

DRUGS (1)
  1. KENALOG [Suspect]
     Active Substance: TRIAMCINOLONE ACETONIDE
     Indication: Product used for unknown indication
     Dosage: OTHER ROUTE : INJECTION OF THE WRIST AND RIGHT CREASE;?
     Route: 050
     Dates: start: 20170712, end: 20170825

REACTIONS (4)
  - Urticaria [None]
  - Skin burning sensation [None]
  - Injection related reaction [None]
  - Surgery [None]

NARRATIVE: CASE EVENT DATE: 20170712
